FAERS Safety Report 8068723-3 (Version None)
Quarter: 2012Q1

REPORT INFORMATION
  Report Type: 
  Country: None (occurrence: None)
  Receive Date: 20120124
  Receipt Date: 20111122
  Transmission Date: 20120608
  Serious: No
  Sender: FDA-Public Use
  Company Number: US-AMGEN-USASP2011061531

PATIENT
  Age: 71 Year
  Sex: Female

DRUGS (5)
  1. BETA BLOCKING AGENTS [Concomitant]
  2. VITAMIN D [Concomitant]
     Dosage: UNK
  3. CALCIUM [Concomitant]
     Dosage: UNK
  4. PROLIA [Suspect]
     Indication: OSTEOPOROSIS POSTMENOPAUSAL
     Dosage: 60 MG, Q6MO
     Dates: start: 20110930
  5. DIURETIC                           /00022001/ [Concomitant]

REACTIONS (6)
  - MUSCULOSKELETAL PAIN [None]
  - MUSCLE SPASMS [None]
  - ORAL DISORDER [None]
  - GAIT DISTURBANCE [None]
  - ARTHRALGIA [None]
  - PARAESTHESIA [None]
